FAERS Safety Report 17488337 (Version 1)
Quarter: 2020Q1

REPORT INFORMATION
  Report Type: Spontaneous
  Country: US (occurrence: US)
  Receive Date: 20200302
  Receipt Date: 20200302
  Transmission Date: 20200409
  Serious: Yes (Other)
  Sender: FDA-Public Use
  Company Number: None

PATIENT
  Age: 52 Year
  Sex: Female
  Weight: 72 kg

DRUGS (8)
  1. ZYRTEC-D [Suspect]
     Active Substance: CETIRIZINE HYDROCHLORIDE\PSEUDOEPHEDRINE HYDROCHLORIDE
     Indication: EAR CONGESTION
     Dosage: ?          QUANTITY:1 TABLET(S);?
     Route: 048
  2. VITAMIN B12 [Concomitant]
     Active Substance: CYANOCOBALAMIN
  3. LUTEIN [Concomitant]
     Active Substance: LUTEIN
  4. FISH OIL [Concomitant]
     Active Substance: FISH OIL
  5. MULTIVITAMIN [Concomitant]
     Active Substance: VITAMINS
  6. VITAMIN D [Concomitant]
     Active Substance: VITAMIN D NOS
  7. MIRENA [Concomitant]
     Active Substance: LEVONORGESTREL
  8. FLAXSEED [Concomitant]
     Active Substance: FLAX SEED

REACTIONS (4)
  - Withdrawal syndrome [None]
  - Rash pruritic [None]
  - Pruritus [None]
  - Therapeutic product effect decreased [None]

NARRATIVE: CASE EVENT DATE: 20200229
